FAERS Safety Report 5238790-0 (Version None)
Quarter: 2007Q1

REPORT INFORMATION
  Report Type: 
  Country: None (occurrence: None)
  Receive Date: 20070215
  Receipt Date: 20070207
  Transmission Date: 20070707
  Serious: Yes (Hospitalization, Other)
  Sender: FDA-Public Use
  Company Number: FR-PFIZER INC-2006074433

PATIENT
  Age: 80 Year
  Sex: Female

DRUGS (3)
  1. NEURONTIN [Suspect]
     Route: 048
     Dates: start: 20060411, end: 20060411
  2. KETOPROFEN [Suspect]
     Dosage: DAILY DOSE:150MG
     Route: 048
     Dates: start: 20060411, end: 20060411
  3. SKENAN [Suspect]
     Route: 048

REACTIONS (3)
  - CEREBRAL HAEMORRHAGE [None]
  - COMA [None]
  - DRUG INTOLERANCE [None]
